FAERS Safety Report 5192158-4 (Version None)
Quarter: 2006Q4

REPORT INFORMATION
  Report Type: 
  Country: None (occurrence: None)
  Receive Date: 20061221
  Receipt Date: 20061221
  Transmission Date: 20070319
  Serious: Yes (Hospitalization)
  Sender: FDA-Public Use
  Company Number: None

PATIENT
  Age: 64 Year
  Sex: Female
  Weight: 80 kg

DRUGS (8)
  1. LISINOPRIL [Suspect]
     Indication: HYPERTENSION
     Dosage: PO
     Route: 048
  2. ADVAIR INHALER [Concomitant]
  3. ALBUTEROL [Concomitant]
  4. GUAIFENESIN [Concomitant]
  5. METFORMIN HCL [Concomitant]
  6. VYTORIN [Concomitant]
  7. CELEXA [Concomitant]
  8. ZITHROMAX [Concomitant]

REACTIONS (5)
  - ANGIONEUROTIC OEDEMA [None]
  - BRONCHITIS ACUTE [None]
  - DYSPHAGIA [None]
  - SPEECH DISORDER [None]
  - STRIDOR [None]
